FAERS Safety Report 11224069 (Version 2)
Quarter: 2015Q2

REPORT INFORMATION
  Report Type: Spontaneous
  Country: CA (occurrence: None)
  Receive Date: 20150625
  Receipt Date: 20150629
  Transmission Date: 20150821
  Serious: Yes (Hospitalization)
  Sender: FDA-Public Use
  Company Number: 2015FE02028

PATIENT
  Age: 84 Year
  Sex: Male

DRUGS (11)
  1. HYDROMORPH CONTIN (HYDROMORPHONE HYDROCHLORIDE) [Concomitant]
  2. LOSARTAN (LOSARTAN) [Concomitant]
     Active Substance: LOSARTAN
  3. INSULIN (INSULIN HUMAN) [Concomitant]
  4. METFORMIN [Concomitant]
     Active Substance: METFORMIN HYDROCHLORIDE
  5. RAPAFLO [Concomitant]
     Active Substance: SILODOSIN
  6. NEVANAC (NEPAFENAC) [Concomitant]
  7. PREDNISOLONE (PREDNISOLONE SODIUM PHOSPHATE) [Concomitant]
     Active Substance: PREDNISOLONE
  8. DEGARELIX (DEGARELIX) POWDER AND SOLVENT FOR SOLUTION FOR INJECTION [Suspect]
     Active Substance: DEGARELIX
     Indication: PROSTATE CANCER
     Dosage: 240 MG, ONCE/SINGLE
     Route: 058
     Dates: start: 20150519, end: 20150519
  9. DETROL LA [Concomitant]
     Active Substance: TOLTERODINE TARTRATE
  10. LUMIGAN RC (BIMATOPROST) [Concomitant]
  11. WARFARIN (WARFARIN) [Concomitant]
     Active Substance: WARFARIN

REACTIONS (4)
  - Abasia [None]
  - Pain [None]
  - Pyrexia [None]
  - General physical health deterioration [None]
